FAERS Safety Report 11368297 (Version 1)
Quarter: 2015Q3

REPORT INFORMATION
  Report Type: Spontaneous
  Country: US (occurrence: US)
  Receive Date: 20150811
  Receipt Date: 20150811
  Transmission Date: 20151125
  Serious: No
  Sender: FDA-Public Use
  Company Number: US-ELI_LILLY_AND_COMPANY-US201403007886

PATIENT
  Age: 22 Year
  Sex: Male
  Weight: 63.49 kg

DRUGS (1)
  1. AXIRON [Suspect]
     Active Substance: TESTOSTERONE
     Indication: HYPOGONADISM
     Dosage: 60 MG, QD
     Route: 061
     Dates: start: 20140213

REACTIONS (3)
  - Application site rash [Recovered/Resolved]
  - Speech disorder [Recovered/Resolved]
  - Swollen tongue [Recovered/Resolved]
